FAERS Safety Report 6095033-6 (Version None)
Quarter: 2009Q1

REPORT INFORMATION
  Report Type: 
  Country: None (occurrence: None)
  Receive Date: 20090227
  Receipt Date: 20080103
  Transmission Date: 20090719
  Serious: No
  Sender: FDA-Public Use
  Company Number: A0701207A

PATIENT
  Age: 27 Year
  Sex: Female

DRUGS (3)
  1. LAMICTAL [Suspect]
     Indication: BIPOLAR DISORDER
     Dosage: 200MG PER DAY
     Route: 048
     Dates: start: 20040101, end: 20071229
  2. ZOLOFT [Suspect]
     Indication: ANXIETY
     Dosage: 200MG PER DAY
     Route: 048
     Dates: start: 20070801
  3. ZOLOFT [Concomitant]

REACTIONS (4)
  - ANXIETY [None]
  - INCREASED APPETITE [None]
  - PRURITUS [None]
  - URTICARIA [None]
